FAERS Safety Report 12137211 (Version 1)
Quarter: 2016Q1

REPORT INFORMATION
  Report Type: Spontaneous
  Country: US (occurrence: US)
  Receive Date: 20160302
  Receipt Date: 20160302
  Transmission Date: 20160526
  Serious: No
  Sender: FDA-Public Use
  Company Number: US-INSYS THERAPEUTICS, INC-INS201507-000310

PATIENT
  Age: 56 Year
  Sex: Male
  Weight: 50.8 kg

DRUGS (3)
  1. SUBSYS [Suspect]
     Active Substance: FENTANYL
     Indication: CHRONIC OBSTRUCTIVE PULMONARY DISEASE
     Route: 060
  2. OXYCONTIN EXTENDED RELEASE [Concomitant]
  3. SUBSYS [Suspect]
     Active Substance: FENTANYL
     Indication: SCIATICA

REACTIONS (3)
  - Cellulitis [Unknown]
  - Off label use [Unknown]
  - Cardiovascular disorder [Unknown]
